FAERS Safety Report 8784101 (Version 4)
Quarter: 2015Q1

REPORT INFORMATION
  Report Type: Report from Study
  Country: GB (occurrence: GB)
  Receive Date: 20120913
  Receipt Date: 20150112
  Transmission Date: 20150721
  Serious: Yes (Hospitalization, Other)
  Sender: FDA-Public Use
  Company Number: GB-009507513-1208GBR004239

PATIENT
  Age: 17 Year
  Sex: Female
  Weight: 57.8 kg

DRUGS (35)
  1. KEPPRA [Concomitant]
     Active Substance: LEVETIRACETAM
     Dosage: 750 MG, BID
     Dates: start: 201201
  2. SULFAMETHOXAZOLE (+) TRIMETHOPRIM [Concomitant]
     Active Substance: SULFAMETHOXAZOLE\TRIMETHOPRIM
     Dosage: 960 MG, QD
     Dates: start: 201205
  3. CEANEL [Concomitant]
  4. TEMOZOLOMIDE. [Suspect]
     Active Substance: TEMOZOLOMIDE
     Dosage: 320 MG, QD
     Route: 048
     Dates: start: 20120927, end: 20121001
  5. TEMOZOLOMIDE. [Suspect]
     Active Substance: TEMOZOLOMIDE
     Dosage: 320 MG, QD
     Route: 048
     Dates: start: 20130117, end: 20130121
  6. ONDANSETRON [Concomitant]
     Active Substance: ONDANSETRON
     Dosage: 24 MG, PRN
     Route: 048
     Dates: start: 20120301, end: 20121121
  7. SILICONE [Concomitant]
     Active Substance: SILICONE
     Dosage: UNK, BID
     Dates: start: 20120410
  8. DERMATIX [Concomitant]
  9. BONJELA (AMINACRINE HYDROCHLORIDE (+) LIDOCAINE HYDROCHLORIDE) [Concomitant]
  10. TEMOZOLOMIDE. [Suspect]
     Active Substance: TEMOZOLOMIDE
     Dosage: 240 MG, QD
     Dates: start: 20120510, end: 20120515
  11. TEMOZOLOMIDE. [Suspect]
     Active Substance: TEMOZOLOMIDE
     Dosage: UNK
     Route: 048
     Dates: start: 20120607, end: 20120612
  12. TEMOZOLOMIDE. [Suspect]
     Active Substance: TEMOZOLOMIDE
     Dosage: 320 MG, QD
     Route: 048
     Dates: start: 20120802
  13. DIFFLAM (BENZYDAMINE HYDROCHLORIDE) [Concomitant]
     Dosage: 15 ML, PRN
     Dates: start: 201205
  14. TEMOZOLOMIDE. [Suspect]
     Active Substance: TEMOZOLOMIDE
     Dosage: 320 MG, QD
     Route: 048
     Dates: start: 20120802
  15. NORETHINDRONE. [Concomitant]
     Active Substance: NORETHINDRONE
     Dosage: UNK
     Dates: start: 20120308
  16. NORETHINDRONE. [Concomitant]
     Active Substance: NORETHINDRONE
     Dosage: 15 MG, QD
     Dates: start: 201205
  17. LACTULOSE. [Concomitant]
     Active Substance: LACTULOSE
     Dosage: 10 ML, PRN
     Dates: start: 20120410, end: 20120620
  18. E45 CREAM [Concomitant]
     Dosage: UNK, PRN
     Dates: start: 20120301, end: 20120501
  19. COLGATE DURAPHAT [Concomitant]
     Active Substance: SODIUM FLUORIDE
  20. HYDROCORTISONE. [Concomitant]
     Active Substance: HYDROCORTISONE
     Dosage: 1 % MG, BID
     Route: 061
     Dates: start: 20120328, end: 20120413
  21. PIRITON [Concomitant]
     Active Substance: CHLORPHENIRAMINE MALEATE
     Dosage: UNK, BID
     Dates: start: 20120224
  22. BACTROBAN [Concomitant]
     Active Substance: MUPIROCIN\MUPIROCIN CALCIUM
     Dosage: UNK
     Dates: start: 20120315, end: 20120611
  23. TEMOZOLOMIDE. [Suspect]
     Active Substance: TEMOZOLOMIDE
     Indication: BRAIN NEOPLASM MALIGNANT
     Dosage: 120 MG, QD
     Route: 048
     Dates: start: 20120227, end: 20120410
  24. KEPPRA [Concomitant]
     Active Substance: LEVETIRACETAM
     Dosage: DAILY DOSE 3000 MG
     Dates: start: 20130206
  25. CHLORPHENAMINE [Concomitant]
     Active Substance: CHLORPHENIRAMINE MALEATE
     Dosage: UNK, PRN
     Route: 048
     Dates: start: 20120224
  26. CORSODYL [Concomitant]
     Active Substance: CHLORHEXIDINE GLUCONATE
     Dosage: 10 ML, PRN, ONCE A DAY
     Dates: start: 201205
  27. KEPPRA [Concomitant]
     Active Substance: LEVETIRACETAM
     Dosage: 1550 MG
     Dates: start: 20110901, end: 20130119
  28. NORETHINDRONE. [Concomitant]
     Active Substance: NORETHINDRONE
     Dosage: 10 MG, QD
     Dates: start: 20120208
  29. HYDROCORTISONE. [Concomitant]
     Active Substance: HYDROCORTISONE
     Dosage: UNK
     Route: 061
     Dates: start: 20120322, end: 20120413
  30. ONDANSETRON [Concomitant]
     Active Substance: ONDANSETRON
     Dosage: 8 MG, BID
     Route: 048
     Dates: start: 20120227
  31. CHLORPHENAMINE [Concomitant]
     Active Substance: CHLORPHENIRAMINE MALEATE
     Dosage: 4 MG, QD
     Route: 048
     Dates: start: 20120530
  32. CERUMOL [Concomitant]
     Dosage: UNK
     Dates: start: 20120523, end: 20120611
  33. EMLA [Concomitant]
     Active Substance: LIDOCAINE\PRILOCAINE
     Dosage: UNK, PRN
     Dates: start: 20120307
  34. TEMOZOLOMIDE. [Suspect]
     Active Substance: TEMOZOLOMIDE
     Dosage: 320 MG, QD
     Route: 048
     Dates: start: 20120802
  35. SULFAMETHOXAZOLE (+) TRIMETHOPRIM [Concomitant]
     Active Substance: SULFAMETHOXAZOLE\TRIMETHOPRIM
     Dosage: UNK
     Dates: start: 20120817

REACTIONS (10)
  - Seizure [Recovered/Resolved]
  - Oropharyngeal pain [Recovered/Resolved]
  - Urticaria [Recovered/Resolved]
  - Oropharyngeal pain [Recovered/Resolved]
  - Partial seizures [Recovered/Resolved]
  - Headache [Recovered/Resolved]
  - Tonsillitis [Recovered/Resolved]
  - Seizure [Recovered/Resolved]
  - Oropharyngeal pain [Recovered/Resolved]
  - Oropharyngeal pain [Recovering/Resolving]

NARRATIVE: CASE EVENT DATE: 20120610
